FAERS Safety Report 5272328-7 (Version None)
Quarter: 2007Q1

REPORT INFORMATION
  Report Type: 
  Country: None (occurrence: None)
  Receive Date: 20070320
  Receipt Date: 20070320
  Transmission Date: 20070707
  Serious: Yes (Other)
  Sender: FDA-Public Use
  Company Number: None

PATIENT
  Sex: Male
  Weight: 112.9457 kg

DRUGS (1)
  1. VANCOMYCIN [Suspect]
     Indication: SEPSIS
     Dosage: 2 GRAMS Q 24 HRS IV
     Route: 042
     Dates: start: 20070218, end: 20070313

REACTIONS (1)
  - RASH ERYTHEMATOUS [None]
